FAERS Safety Report 19608250 (Version 1)
Quarter: 2021Q3

REPORT INFORMATION
  Report Type: Spontaneous
  Country: US (occurrence: US)
  Receive Date: 20210726
  Receipt Date: 20210726
  Transmission Date: 20211014
  Serious: Yes (Other)
  Sender: FDA-Public Use
  Company Number: NVSC2021US163737

PATIENT
  Age: 66 Year
  Sex: Male

DRUGS (3)
  1. LEUCOVORIN. [Suspect]
     Active Substance: LEUCOVORIN
     Indication: OESOPHAGEAL ADENOCARCINOMA STAGE IV
     Dosage: 900 MG, ONCE/SINGLE (SINGLE COURSE OF FOLFOX?6)
     Route: 065
  2. OXALIPLATIN. [Suspect]
     Active Substance: OXALIPLATIN
     Indication: OESOPHAGEAL ADENOCARCINOMA STAGE IV
     Dosage: 200 MG, ONCE/SINGLE (SINGLE COURSE OF FOLFOX?6)
     Route: 065
  3. 5?FLUOROURACIL [Suspect]
     Active Substance: FLUOROURACIL
     Indication: OESOPHAGEAL ADENOCARCINOMA STAGE IV
     Dosage: 5500 MG, ONCE/SINGLE (SINGLE COURSE OF FOLFOX?6)
     Route: 065

REACTIONS (3)
  - Laryngeal oedema [Recovering/Resolving]
  - Product use in unapproved indication [Unknown]
  - Tumour necrosis [Recovering/Resolving]
